FAERS Safety Report 10862975 (Version 1)
Quarter: 2015Q1

REPORT INFORMATION
  Report Type: Spontaneous
  Country: US (occurrence: US)
  Receive Date: 20150224
  Receipt Date: 20150224
  Transmission Date: 20150721
  Serious: No
  Sender: FDA-Public Use
  Company Number: US-TEVA-543367USA

PATIENT
  Sex: Female
  Weight: 80.81 kg

DRUGS (3)
  1. PROVIGIL [Suspect]
     Active Substance: MODAFINIL
     Indication: MULTIPLE SCLEROSIS
     Dosage: HALF TABLET TWICE A DAY
     Route: 048
  2. DEPAKOTE [Concomitant]
     Active Substance: DIVALPROEX SODIUM
     Indication: NERVOUS SYSTEM DISORDER
  3. AVONEX [Concomitant]
     Active Substance: INTERFERON BETA-1A
     Indication: MULTIPLE SCLEROSIS

REACTIONS (4)
  - Fatigue [Unknown]
  - Drug effect increased [Recovered/Resolved]
  - Product use issue [Unknown]
  - Irritability [Unknown]
